FAERS Safety Report 20893954 (Version 1)
Quarter: 2022Q2

REPORT INFORMATION
  Report Type: Spontaneous
  Country: US (occurrence: None)
  Receive Date: 20220528
  Receipt Date: 20220528
  Transmission Date: 20220721
  Serious: Yes (Other)
  Sender: FDA-Public Use
  Company Number: None

PATIENT
  Age: 40 Year
  Sex: Female
  Weight: 90 kg

DRUGS (9)
  1. EVUSHELD [Suspect]
     Active Substance: CILGAVIMAB\TIXAGEVIMAB
     Indication: Immunodeficiency
     Route: 030
     Dates: start: 20220509
  2. EVUSHELD [Suspect]
     Active Substance: CILGAVIMAB\TIXAGEVIMAB
     Indication: Systemic lupus erythematosus
  3. EVUSHELD [Suspect]
     Active Substance: CILGAVIMAB\TIXAGEVIMAB
     Indication: Sjogren^s syndrome
  4. EVUSHELD [Suspect]
     Active Substance: CILGAVIMAB\TIXAGEVIMAB
     Indication: Rheumatoid arthritis
  5. MYCOPHENOLIC ACID [Concomitant]
     Active Substance: MYCOPHENOLIC ACID
  6. BENLYSTA [Concomitant]
     Active Substance: BELIMUMAB
  7. PRISTIQ EXTENDED-RELEASE [Concomitant]
     Active Substance: DESVENLAFAXINE SUCCINATE
  8. DIAZEPAM [Concomitant]
     Active Substance: DIAZEPAM
  9. VITAMIN D [Concomitant]
     Active Substance: VITAMIN D NOS

REACTIONS (11)
  - Fatigue [None]
  - Headache [None]
  - Dyspnoea [None]
  - Chest discomfort [None]
  - Arthralgia [None]
  - Myalgia [None]
  - Chills [None]
  - Hot flush [None]
  - Skin exfoliation [None]
  - Psoriasis [None]
  - Hypersensitivity [None]

NARRATIVE: CASE EVENT DATE: 20220509
